FAERS Safety Report 14818418 (Version 1)
Quarter: 2018Q2

REPORT INFORMATION
  Report Type: Spontaneous
  Country: DE (occurrence: DE)
  Receive Date: 20180427
  Receipt Date: 20180427
  Transmission Date: 20180711
  Serious: Yes (Other)
  Sender: FDA-Public Use
  Company Number: DE-009507513-1804DEU009116

PATIENT
  Sex: Male

DRUGS (1)
  1. REMERGIL [Suspect]
     Active Substance: MIRTAZAPINE
     Indication: DEPRESSION
     Dosage: UNK
     Route: 048

REACTIONS (4)
  - Metastases to stomach [Unknown]
  - Metastases to liver [Unknown]
  - Intestinal metastasis [Unknown]
  - Depression [Unknown]

NARRATIVE: CASE EVENT DATE: 2018
